FAERS Safety Report 20785909 (Version 3)
Quarter: 2022Q4

REPORT INFORMATION
  Report Type: Report from Study
  Country: CL (occurrence: CL)
  Receive Date: 20220504
  Receipt Date: 20221215
  Transmission Date: 20230112
  Serious: Yes (Hospitalization, Other)
  Sender: FDA-Public Use
  Company Number: CL-BRISTOL-MYERS SQUIBB COMPANY-2022-030265

PATIENT
  Age: 67 Year
  Sex: Female
  Weight: 60 kg

DRUGS (32)
  1. PLACEBO [Suspect]
     Active Substance: UNSPECIFIED INGREDIENT
     Indication: Breast cancer
     Dosage: LAST DOSE ON 07-APR-2022, DOSE DELAYED
     Route: 042
     Dates: start: 20211130
  2. PACLITAXEL [Suspect]
     Active Substance: PACLITAXEL
     Indication: Breast cancer
     Dosage: MOST RECENT DOSE OF 124.8 MG ON 15-FEB-2022?DOSE DELAYED
     Route: 042
     Dates: start: 20211130
  3. CYCLOPHOSPHAMIDE [Suspect]
     Active Substance: CYCLOPHOSPHAMIDE
     Indication: Breast cancer
     Dosage: MOST RECENT DOSE OF 906 MG ON 07-APR-2022?DOSE DELAYED
     Route: 042
     Dates: start: 20220311
  4. DOXORUBICIN HYDROCHLORIDE [Suspect]
     Active Substance: DOXORUBICIN HYDROCHLORIDE
     Indication: Breast cancer
     Dosage: MOST RECENT DOSE OF 90.6 MG ON 07-APR-2022?DOSE DELAYED
     Route: 042
     Dates: start: 20220311
  5. DEXAMETHASONE [Concomitant]
     Active Substance: DEXAMETHASONE
     Indication: Prophylaxis
     Dosage: ONGOING
     Route: 048
     Dates: start: 20220311
  6. DEXAMETHASONE [Concomitant]
     Active Substance: DEXAMETHASONE
  7. DEXAMETHASONE [Concomitant]
     Active Substance: DEXAMETHASONE
  8. TRIMEBUTINE [Concomitant]
     Active Substance: TRIMEBUTINE
     Indication: Product used for unknown indication
     Dosage: START DATE:--2006?ONGOING
     Route: 048
  9. TRIMEBUTINE [Concomitant]
     Active Substance: TRIMEBUTINE
  10. TRIMEBUTINE [Concomitant]
     Active Substance: TRIMEBUTINE
  11. METOCLOPRAMIDE [Concomitant]
     Active Substance: METOCLOPRAMIDE
     Indication: Prophylaxis
     Dosage: ONGOING
     Route: 048
     Dates: start: 20220311
  12. METOCLOPRAMIDE [Concomitant]
     Active Substance: METOCLOPRAMIDE
  13. METOCLOPRAMIDE [Concomitant]
     Active Substance: METOCLOPRAMIDE
  14. OLANZAPINE [Concomitant]
     Active Substance: OLANZAPINE
     Indication: Prophylaxis
     Dosage: ONGOING
     Route: 048
     Dates: start: 20220311
  15. OLANZAPINE [Concomitant]
     Active Substance: OLANZAPINE
  16. OLANZAPINE [Concomitant]
     Active Substance: OLANZAPINE
  17. PREGABALIN [Concomitant]
     Active Substance: PREGABALIN
     Indication: Arthralgia
     Route: 048
     Dates: start: 20220303, end: 20220804
  18. PREGABALIN [Concomitant]
     Active Substance: PREGABALIN
     Indication: Neuropathy peripheral
  19. ACETAMINOPHEN [Concomitant]
     Active Substance: ACETAMINOPHEN
     Indication: Headache
     Dosage: ONGOING
     Route: 048
     Dates: start: 20220110
  20. ACETAMINOPHEN [Concomitant]
     Active Substance: ACETAMINOPHEN
     Indication: Procedural pain
  21. ATORVASTATIN [Concomitant]
     Active Substance: ATORVASTATIN
     Indication: Product used for unknown indication
     Dosage: START DATE:--2006
     Route: 048
  22. ATLANTIC SALMON OIL [Concomitant]
     Active Substance: ATLANTIC SALMON OIL
     Indication: Prophylaxis
     Dosage: START DATE:--2016
     Route: 048
  23. METFORMIN [Concomitant]
     Active Substance: METFORMIN HYDROCHLORIDE
     Indication: Product used for unknown indication
     Dosage: START DATE:--2006
     Route: 048
  24. PREDNISONE [Concomitant]
     Active Substance: PREDNISONE
     Indication: Prophylaxis
     Dosage: ONGOING
     Route: 048
     Dates: start: 20220331
  25. ENOXOLONE [Concomitant]
     Active Substance: ENOXOLONE
     Indication: Anal inflammation
     Dosage: 1 UNIT NOS
     Route: 061
     Dates: start: 20220331, end: 20220718
  26. ORALGENE XILITOL [Concomitant]
     Indication: Stomatitis
     Dosage: 10 UNITS NOS
     Route: 061
     Dates: start: 20220323, end: 20220718
  27. HYDROCORTISONE [Concomitant]
     Active Substance: HYDROCORTISONE
     Indication: Stomatitis
     Dosage: 1 UNIT NOS?0.04%
     Route: 061
     Dates: start: 20220406, end: 20220718
  28. ONDANSETRON [Concomitant]
     Active Substance: ONDANSETRON
     Indication: Prophylaxis
     Dosage: ONGOING
     Route: 048
     Dates: start: 20220311
  29. UREA 10% [Concomitant]
     Indication: Xerosis
     Dosage: 1 UNIT NOS?10%?ONGOING
     Route: 061
     Dates: start: 20211220
  30. FENOTEROL HYDROBROMIDE\IPRATROPIUM BROMIDE [Concomitant]
     Active Substance: FENOTEROL HYDROBROMIDE\IPRATROPIUM BROMIDE
     Indication: Bronchitis
     Dosage: 2 UNIT NOS
     Route: 055
     Dates: start: 20220420, end: 20220718
  31. DESLORATADINE [Concomitant]
     Active Substance: DESLORATADINE
     Indication: Bronchitis
     Route: 048
     Dates: start: 20220420, end: 20220718
  32. LEVOFLOXACIN [Concomitant]
     Active Substance: LEVOFLOXACIN
     Indication: Bronchitis
     Route: 048
     Dates: start: 20220420, end: 20220718

REACTIONS (1)
  - Pneumonia [Recovered/Resolved]

NARRATIVE: CASE EVENT DATE: 20220424
